FAERS Safety Report 6217046-3 (Version None)
Quarter: 2009Q2

REPORT INFORMATION
  Report Type: 
  Country: None (occurrence: None)
  Receive Date: 20090606
  Receipt Date: 20090601
  Transmission Date: 20091009
  Serious: Yes (Life-Threatening)
  Sender: FDA-Public Use
  Company Number: JP-ABBOTT-09P-087-0577245-00

PATIENT
  Sex: Female
  Weight: 60 kg

DRUGS (14)
  1. NORVIR [Suspect]
     Indication: HIV INFECTION
     Route: 048
     Dates: start: 20081022, end: 20081025
  2. KALETRA [Concomitant]
     Indication: HIV INFECTION
     Route: 048
     Dates: start: 20081101, end: 20081130
  3. KALETRA [Concomitant]
     Route: 048
     Dates: start: 20081201, end: 20090312
  4. STOCRIN [Concomitant]
     Indication: HIV INFECTION
     Route: 048
     Dates: start: 20080926, end: 20081021
  5. STOCRIN [Concomitant]
     Route: 048
     Dates: start: 20090313
  6. REYATAZ [Concomitant]
     Indication: HIV INFECTION
     Route: 048
     Dates: start: 20081022, end: 20081025
  7. EPZICOM [Concomitant]
     Indication: HIV INFECTION
     Route: 048
     Dates: start: 20081022, end: 20081025
  8. TRUVADA [Concomitant]
     Indication: HIV INFECTION
     Route: 048
     Dates: start: 20080926, end: 20081021
  9. TRUVADA [Concomitant]
     Route: 048
     Dates: start: 20081101
  10. ELECTROLYTE SOLUTIONS [Concomitant]
     Indication: POSTOPERATIVE CARE
     Route: 042
     Dates: start: 20081025, end: 20081109
  11. AMLODIPINE BESYLATE [Concomitant]
     Indication: CEREBRAL HAEMORRHAGE
     Route: 048
     Dates: start: 20081028, end: 20081121
  12. AMLODIPINE BESYLATE [Concomitant]
     Route: 048
     Dates: start: 20081122
  13. ENALAPRIL MALEATE [Concomitant]
     Indication: CEREBRAL HAEMORRHAGE
     Dates: start: 20081101, end: 20081107
  14. ENSURE [Concomitant]
     Indication: ENTERAL NUTRITION
     Dates: start: 20081101, end: 20081107

REACTIONS (2)
  - CEREBRAL HAEMORRHAGE [None]
  - POST PROCEDURAL PNEUMONIA [None]
